FAERS Safety Report 7239915-8 (Version None)
Quarter: 2011Q1

REPORT INFORMATION
  Report Type: 
  Country: None (occurrence: None)
  Receive Date: 20110124
  Receipt Date: 20110112
  Transmission Date: 20110831
  Serious: Yes (Hospitalization, Other)
  Sender: FDA-Public Use
  Company Number: US-BIOGENIDEC-2010BI023067

PATIENT
  Age: 39 Year
  Sex: Female

DRUGS (7)
  1. TYSABRI [Suspect]
     Indication: MULTIPLE SCLEROSIS
     Route: 042
     Dates: start: 20081015, end: 20100304
  2. ASPIRIN [Concomitant]
     Dates: start: 20100320, end: 20100509
  3. VIVELLE [Concomitant]
     Dates: start: 20100318, end: 20100513
  4. LUPRON [Concomitant]
     Dates: start: 20100318, end: 20100320
  5. PRENATAL VITAMINS [Concomitant]
  6. CRINONE [Concomitant]
     Dates: start: 20100320, end: 20100513
  7. PROGESTERONE [Concomitant]
     Dates: start: 20100320, end: 20100509

REACTIONS (3)
  - CAESAREAN SECTION [None]
  - PRE-ECLAMPSIA [None]
  - TWIN PREGNANCY [None]
